FAERS Safety Report 25577682 (Version 1)
Quarter: 2025Q3

REPORT INFORMATION
  Report Type: Spontaneous
  Country: US (occurrence: None)
  Receive Date: 20250717
  Receipt Date: 20250717
  Transmission Date: 20251021
  Serious: Yes (Other)
  Sender: FDA-CTU
  Company Number: None

PATIENT
  Age: 10 Week
  Sex: Male

DRUGS (2)
  1. AMINO ACIDS\DEXTROSE\ELECTROLYTES NOS\HEPARIN [Suspect]
     Active Substance: AMINO ACIDS\DEXTROSE\ELECTROLYTES NOS\HEPARIN
     Route: 042
     Dates: start: 20231121, end: 20240302
  2. VORICONAZOLE [Suspect]
     Active Substance: VORICONAZOLE

REACTIONS (1)
  - Neonatal cholestasis [None]

NARRATIVE: CASE EVENT DATE: 20240119
